FAERS Safety Report 6157360-3 (Version None)
Quarter: 2009Q2

REPORT INFORMATION
  Report Type: 
  Country: None (occurrence: None)
  Receive Date: 20090416
  Receipt Date: 20090410
  Transmission Date: 20091009
  Serious: Yes (Other)
  Sender: FDA-Public Use
  Company Number: ES-BRISTOL-MYERS SQUIBB COMPANY-14566228

PATIENT
  Age: 75 Year
  Sex: Female

DRUGS (2)
  1. AMPICILLIN [Suspect]
     Indication: ENDOCARDITIS ENTEROCOCCAL
     Route: 042
  2. GENTAMICIN [Suspect]
     Indication: ENDOCARDITIS ENTEROCOCCAL
     Route: 042

REACTIONS (1)
  - RENAL FAILURE ACUTE [None]
